FAERS Safety Report 7408427-0 (Version None)
Quarter: 2011Q2

REPORT INFORMATION
  Report Type: 
  Country: None (occurrence: None)
  Receive Date: 20110412
  Receipt Date: 20110408
  Transmission Date: 20111010
  Serious: Yes (Death, Hospitalization)
  Sender: FDA-Public Use
  Company Number: GR-JNJFOC-20110404111

PATIENT
  Sex: Female

DRUGS (2)
  1. CAELYX [Suspect]
     Indication: OVARIAN CANCER
     Dosage: CYCLE 2
     Route: 042
  2. YONDELIS [Suspect]
     Indication: OVARIAN CANCER
     Dosage: CYCLE 2
     Route: 042

REACTIONS (2)
  - THROMBOCYTOPENIA [None]
  - PANCYTOPENIA [None]
